FAERS Safety Report 17272155 (Version 2)
Quarter: 2020Q1

REPORT INFORMATION
  Report Type: Spontaneous
  Country: CA (occurrence: CA)
  Receive Date: 20200115
  Receipt Date: 20200120
  Transmission Date: 20200409
  Serious: No
  Sender: FDA-Public Use
  Company Number: CA-PFIZER INC-2020018614

PATIENT
  Age: 43 Year
  Sex: Female

DRUGS (2)
  1. IMMUNOGLOBULINS NOS [Concomitant]
     Active Substance: IMMUNE GLOBULIN NOS
     Dosage: UNK UNK, MONTHLY (EVERY 4 WEEKS)
     Route: 042
  2. METHOTREXATE SODIUM. [Suspect]
     Active Substance: METHOTREXATE SODIUM
     Dosage: 25 MG, WEEKLY
     Route: 058

REACTIONS (11)
  - Arthralgia [Unknown]
  - Arthritis [Unknown]
  - Diarrhoea [Unknown]
  - Pain in extremity [Unknown]
  - Dactylitis [Unknown]
  - Off label use [Unknown]
  - Headache [Not Recovered/Not Resolved]
  - Tenosynovitis [Unknown]
  - Inflammation [Unknown]
  - Paraesthesia [Unknown]
  - Product use issue [Unknown]

NARRATIVE: CASE EVENT DATE: 2019
